FAERS Safety Report 5284341-4 (Version None)
Quarter: 2007Q2

REPORT INFORMATION
  Report Type: 
  Country: None (occurrence: None)
  Receive Date: 20070403
  Receipt Date: 20070323
  Transmission Date: 20071010
  Serious: Yes (Hospitalization)
  Sender: FDA-Public Use
  Company Number: US-KINGPHARMUSA00001-K200700356

PATIENT

DRUGS (3)
  1. INTAL [Suspect]
     Indication: ASTHMA
     Dosage: 4 U, QD
     Dates: start: 20061215, end: 20061230
  2. PULMICORT [Suspect]
  3. VENTOLINE   /00139501/ [Concomitant]

REACTIONS (2)
  - DYSURIA [None]
  - URINARY RETENTION [None]
